FAERS Safety Report 8123448-0 (Version None)
Quarter: 2012Q1

REPORT INFORMATION
  Report Type: 
  Country: None (occurrence: None)
  Receive Date: 20120208
  Receipt Date: 20120131
  Transmission Date: 20120608
  Serious: Yes (Other)
  Sender: FDA-Public Use
  Company Number: PHEH2012US003208

PATIENT
  Sex: Male

DRUGS (5)
  1. TASIGNA [Suspect]
     Indication: MYELOID LEUKAEMIA
     Dosage: 300 MG, BID
     Route: 048
     Dates: start: 20110504
  2. LANTUS [Concomitant]
     Dosage: 80 ML, BID
     Dates: start: 20110412
  3. PAROXETINE HCL [Concomitant]
     Dosage: 1 DF, UNK
     Dates: start: 20110914
  4. METFORMIN HCL [Concomitant]
     Dosage: 1 DF, BID
     Dates: start: 20110412
  5. SIMVASTATIN [Concomitant]
     Dosage: 1 DF, UNK
     Dates: start: 20110412

REACTIONS (2)
  - VISUAL IMPAIRMENT [None]
  - BLOOD GLUCOSE INCREASED [None]
